FAERS Safety Report 23127137 (Version 1)
Quarter: 2023Q4

REPORT INFORMATION
  Report Type: Spontaneous
  Country: IT (occurrence: IT)
  Receive Date: 20231030
  Receipt Date: 20231030
  Transmission Date: 20240109
  Serious: Yes (Other)
  Sender: FDA-Public Use
  Company Number: None

PATIENT
  Age: 34 Year
  Sex: Female

DRUGS (4)
  1. PYRAZINAMIDE [Suspect]
     Active Substance: PYRAZINAMIDE
     Indication: Tuberculosis
     Dosage: 500 MG, TID
     Route: 048
     Dates: start: 20230831, end: 20230913
  2. ISONIAZID [Suspect]
     Active Substance: ISONIAZID
     Indication: Tuberculosis
     Dosage: 300 MG, QD (1 TABLET + 1/2 TABLET DAY)
     Route: 048
     Dates: start: 20230831, end: 20230913
  3. RIFADIN [Suspect]
     Active Substance: RIFAMPIN
     Indication: Tuberculosis
     Dosage: 300 MG, BID
     Route: 048
     Dates: start: 20230831, end: 20230913
  4. ETHAMBUTOL HYDROCHLORIDE [Suspect]
     Active Substance: ETHAMBUTOL HYDROCHLORIDE
     Indication: Tuberculosis
     Dosage: 400 MG, TID
     Route: 048
     Dates: start: 20230831, end: 20230913

REACTIONS (1)
  - Hypertransaminasaemia [Recovered/Resolved]

NARRATIVE: CASE EVENT DATE: 20230913
